FAERS Safety Report 11090057 (Version 1)
Quarter: 2015Q2

REPORT INFORMATION
  Report Type: Spontaneous
  Country: DE (occurrence: DE)
  Receive Date: 20150505
  Receipt Date: 20150505
  Transmission Date: 20150821
  Serious: Yes (Other)
  Sender: FDA-Public Use
  Company Number: DE-AUROBINDO-AUR-APL-2015-03966

PATIENT
  Age: 31 Year
  Sex: Female
  Weight: 105 kg

DRUGS (7)
  1. CANDESARTAN 16 MG [Suspect]
     Active Substance: CANDESARTAN
     Indication: HYPERTENSION
     Dosage: 16 MG, ONCE A DAY
     Route: 048
     Dates: start: 20140303, end: 20140804
  2. METHYLDOPA. [Concomitant]
     Active Substance: METHYLDOPA
     Indication: HYPERTENSION
     Dosage: 1000 MG, DAILY
     Route: 048
     Dates: start: 20140805
  3. METHYLDOPA. [Concomitant]
     Active Substance: METHYLDOPA
     Dosage: 250-250-500
     Route: 048
     Dates: end: 20141201
  4. L THYROXIN [Concomitant]
     Active Substance: LEVOTHYROXINE SODIUM
     Indication: HYPOTHYROIDISM
     Dosage: 50 ?G, ONCE A DAY
     Route: 048
     Dates: start: 20140303
  5. FOLSAN [Concomitant]
     Active Substance: FOLIC ACID
     Indication: PROPHYLAXIS OF NEURAL TUBE DEFECT
     Dosage: 0.4 MG, ONCE A DAY
     Route: 048
     Dates: start: 20140303, end: 20141201
  6. HYDROCHLOROTHIAZIDE 12.5 MG, HERITAGE PHARMACY [Suspect]
     Active Substance: HYDROCHLOROTHIAZIDE
     Indication: HYPERTENSION
     Dosage: 12.5 MG, ONCE A DAY
     Route: 048
     Dates: start: 20140303, end: 20140804
  7. L THYROXIN [Concomitant]
     Active Substance: LEVOTHYROXINE SODIUM
     Dosage: 75 ?G, ONCE A DAY
     Route: 048
     Dates: end: 20141201

REACTIONS (2)
  - Exposure during pregnancy [Recovered/Resolved]
  - Oligohydramnios [Recovered/Resolved]
